FAERS Safety Report 6535369-5 (Version None)
Quarter: 2009Q4

REPORT INFORMATION
  Report Type: 
  Country: None (occurrence: None)
  Receive Date: 20091228
  Receipt Date: 20090706
  Transmission Date: 20100525
  Serious: Yes (Hospitalization)
  Sender: FDA-Public Use
  Company Number: US-003063

PATIENT
  Age: 43 Year
  Sex: Male

DRUGS (2)
  1. MULTIHANCE [Suspect]
     Indication: NUCLEAR MAGNETIC RESONANCE IMAGING BRAIN
     Dosage: 8ML QD INTRAVENOUS
     Route: 042
     Dates: start: 20090702, end: 20090702
  2. MULTIHANCE [Suspect]
     Indication: TRANSIENT ISCHAEMIC ATTACK
     Dosage: 8ML QD INTRAVENOUS
     Route: 042
     Dates: start: 20090702, end: 20090702

REACTIONS (5)
  - BLOOD PRESSURE INCREASED [None]
  - CHEST DISCOMFORT [None]
  - NAUSEA [None]
  - SOMNOLENCE [None]
  - VOMITING [None]
